FAERS Safety Report 5483313-4 (Version None)
Quarter: 2007Q4

REPORT INFORMATION
  Report Type: 
  Country: None (occurrence: None)
  Receive Date: 20071012
  Receipt Date: 20071002
  Transmission Date: 20080405
  Serious: Yes (Other)
  Sender: FDA-Public Use
  Company Number: PHNU2007DE03317

PATIENT
  Sex: Male

DRUGS (5)
  1. LEPONEX [Suspect]
     Dosage: 400 MG/DAY
     Route: 048
     Dates: start: 20040101
  2. SOLIAN [Concomitant]
     Dosage: 300 MG/DAY
  3. ABILIFY [Concomitant]
     Dosage: 10 MG/DAY
  4. STANGYL [Concomitant]
  5. GASTROZEPIN [Concomitant]

REACTIONS (1)
  - EJACULATION FAILURE [None]
